FAERS Safety Report 23745397 (Version 2)
Quarter: 2024Q3

REPORT INFORMATION
  Report Type: Report from Study
  Country: JP (occurrence: JP)
  Receive Date: 20240416
  Receipt Date: 20240921
  Transmission Date: 20241017
  Serious: Yes (Death, Other)
  Sender: ABBVIE
  Company Number: JP-TAKEDA-2024TJP005414

PATIENT
  Age: 62 Year
  Sex: Male
  Weight: 41 kg

DRUGS (3)
  1. LEUPLIN [Suspect]
     Active Substance: LEUPROLIDE ACETATE
     Indication: Bulbospinal muscular atrophy congenital
     Dosage: 11.25 MILLIGRAM, Q3MONTHS
     Route: 058
     Dates: start: 20230801, end: 20231231
  2. RIVOTRIL [Concomitant]
     Active Substance: CLONAZEPAM
     Indication: Familial tremor
     Dosage: 1 MILLIGRAM, BID
     Route: 048
     Dates: start: 1998
  3. TERIPARATIDE ACETATE [Concomitant]
     Active Substance: TERIPARATIDE ACETATE
     Indication: Product used for unknown indication
     Dosage: UNK
     Route: 058

REACTIONS (2)
  - Completed suicide [Fatal]
  - Fall [Unknown]

NARRATIVE: CASE EVENT DATE: 20231001
